FAERS Safety Report 4325932-4 (Version None)
Quarter: 2004Q1

REPORT INFORMATION
  Report Type: 
  Country: None (occurrence: None)
  Receive Date: 20040329
  Receipt Date: 20030318
  Transmission Date: 20041129
  Serious: Yes (Hospitalization)
  Sender: FDA-Public Use
  Company Number: US-BRISTOL-MYERS SQUIBB COMPANY-12218517

PATIENT
  Age: 20 Year
  Sex: Male

DRUGS (6)
  1. HOLOXAN [Suspect]
     Indication: BONE SARCOMA
     Dosage: 5 G 21-MAR-2003 TO 24-MAR-2003
     Route: 042
     Dates: start: 20030211, end: 20030212
  2. ETOPOSIDE [Suspect]
     Indication: BONE SARCOMA
     Dosage: 124 MG 21-MAR-2003 TO 24-MAR-2003
     Route: 042
     Dates: start: 20030211, end: 20030214
  3. RIVOTRIL [Suspect]
     Indication: CONVULSION
     Route: 042
     Dates: start: 20030211, end: 20030212
  4. FOSFOCINE [Suspect]
     Indication: POSTOPERATIVE INFECTION
     Route: 042
     Dates: start: 20030106
  5. TARGOCID [Suspect]
     Indication: POSTOPERATIVE INFECTION
     Dosage: 300 MG 31-MAR-2003
     Route: 042
     Dates: start: 20030106
  6. PRIMAXIN [Suspect]
     Indication: POSTOPERATIVE INFECTION
     Dosage: 1 G P.O. 01-MAR-2003 TO 31-MAR-2003
     Route: 042
     Dates: start: 20030106

REACTIONS (3)
  - APATHY [None]
  - ASTHENIA [None]
  - SOMNOLENCE [None]
